FAERS Safety Report 20951712 (Version 1)
Quarter: 2022Q2

REPORT INFORMATION
  Report Type: Spontaneous
  Country: FR (occurrence: FR)
  Receive Date: 20220613
  Receipt Date: 20220613
  Transmission Date: 20220721
  Serious: Yes (Hospitalization, Other)
  Sender: FDA-Public Use
  Company Number: FR-PFIZER INC-202200790192

PATIENT
  Age: 40 Year
  Sex: Female

DRUGS (2)
  1. OXALIPLATIN [Suspect]
     Active Substance: OXALIPLATIN
     Indication: Follicular thyroid cancer
     Dosage: UNK, 12 CYCLES
     Dates: start: 200806, end: 200812
  2. GEMCITABINE HYDROCHLORIDE [Suspect]
     Active Substance: GEMCITABINE HYDROCHLORIDE
     Indication: Follicular thyroid cancer
     Dosage: UNK, 12 CYCLES
     Dates: start: 200806, end: 200812

REACTIONS (1)
  - Haemoptysis [Recovered/Resolved]
